FAERS Safety Report 9239995 (Version 1)
Quarter: 2013Q2

REPORT INFORMATION
  Report Type: Spontaneous
  Country: US (occurrence: US)
  Receive Date: 20130418
  Receipt Date: 20130418
  Transmission Date: 20140414
  Serious: Yes (Other)
  Sender: FDA-Public Use
  Company Number: US-ASTRAZENECA-2013SE24018

PATIENT
  Sex: 0

DRUGS (2)
  1. ARIMIDEX [Suspect]
     Route: 048
  2. TAMOXIFEN [Suspect]
     Route: 048

REACTIONS (3)
  - Staphylococcal infection [Unknown]
  - Lymphoedema [Unknown]
  - Adverse drug reaction [Unknown]
